FAERS Safety Report 20394071 (Version 1)
Quarter: 2022Q1

REPORT INFORMATION
  Report Type: Report from Study
  Country: US (occurrence: US)
  Receive Date: 20220129
  Receipt Date: 20220129
  Transmission Date: 20220423
  Serious: No
  Sender: FDA-Public Use
  Company Number: US-NOVARTISTESTPH-NVSC2022US018762

PATIENT
  Sex: Male
  Weight: 64 kg

DRUGS (1)
  1. KYMRIAH [Suspect]
     Active Substance: TISAGENLECLEUCEL
     Indication: Acute lymphocytic leukaemia
     Dosage: ONE SINGLE DOSE (1.4E8 CAR-T CELLS)
     Route: 042
     Dates: start: 20220118

REACTIONS (2)
  - Myalgia [Unknown]
  - Pyrexia [Unknown]
